FAERS Safety Report 13892978 (Version 1)
Quarter: 2017Q3

REPORT INFORMATION
  Report Type: Spontaneous
  Country: US (occurrence: US)
  Receive Date: 20170822
  Receipt Date: 20170822
  Transmission Date: 20171127
  Serious: Yes (Other)
  Sender: FDA-Public Use
  Company Number: US-ROCHE-1160311

PATIENT
  Age: 48 Year
  Sex: Female

DRUGS (3)
  1. HERCEPTIN [Suspect]
     Active Substance: TRASTUZUMAB
     Indication: BREAST CANCER
     Dosage: 8 DOSES
     Route: 065
     Dates: start: 20120307
  2. HERCEPTIN [Suspect]
     Active Substance: TRASTUZUMAB
     Dosage: 2 DOSES, LAST DOSE GIVEN ON 13/JUN/2012
     Route: 065
     Dates: end: 20120710
  3. TAXOL [Concomitant]
     Active Substance: PACLITAXEL
     Route: 065
     Dates: start: 20120307, end: 20120523

REACTIONS (2)
  - Ejection fraction decreased [Recovering/Resolving]
  - Cardiomyopathy [Recovered/Resolved]

NARRATIVE: CASE EVENT DATE: 20120710
